FAERS Safety Report 6578186-2 (Version None)
Quarter: 2010Q1

REPORT INFORMATION
  Report Type: 
  Country: None (occurrence: None)
  Receive Date: 20100211
  Receipt Date: 20100202
  Transmission Date: 20100710
  Serious: Yes (Hospitalization, Disabling)
  Sender: FDA-Public Use
  Company Number: GXKR2010NO01539

PATIENT
  Sex: Male

DRUGS (7)
  1. SIMVASTATIN (NGX) [Suspect]
     Indication: HYPERCHOLESTEROLAEMIA
     Dosage: UNK
     Route: 048
     Dates: start: 20080401, end: 20080601
  2. SELO-ZOK [Concomitant]
     Indication: HYPERTENSION
  3. ALBYL-E [Concomitant]
     Indication: MYOCARDIAL INFARCTION
  4. IMDUR [Concomitant]
  5. CENTYL [Concomitant]
  6. EZETROL [Concomitant]
  7. TELFAST                                 /SCH/ [Concomitant]

REACTIONS (3)
  - INCLUSION BODY MYOSITIS [None]
  - MUSCULAR WEAKNESS [None]
  - MYOPATHY [None]
